FAERS Safety Report 13784138 (Version 2)
Quarter: 2017Q3

REPORT INFORMATION
  Report Type: Report from Study
  Country: US (occurrence: US)
  Receive Date: 20170724
  Receipt Date: 20170802
  Transmission Date: 20171127
  Serious: Yes (Hospitalization)
  Sender: FDA-Public Use
  Company Number: US-ACTELION-A-US2017-155356

PATIENT
  Age: 2 Year
  Sex: Female

DRUGS (17)
  1. GLYCERIN. [Concomitant]
     Active Substance: GLYCERIN
  2. IRON [Concomitant]
     Active Substance: IRON
     Route: 048
  3. FLOXIN [Concomitant]
     Active Substance: OFLOXACIN
     Route: 001
  4. CEELIN PLUS [Concomitant]
  5. REVATIO [Concomitant]
     Active Substance: SILDENAFIL CITRATE
     Dosage: 10 MG/ML, UNK
     Route: 048
  6. ALDACTONE [Concomitant]
     Active Substance: SPIRONOLACTONE
     Dosage: 10 MG/ML, UNK
     Route: 048
  7. APPEBON WITH IRON [Concomitant]
  8. CHILDREN^S PAIN RELIEF [Concomitant]
     Active Substance: ACETAMINOPHEN
     Route: 048
  9. ROXICODONE [Concomitant]
     Active Substance: OXYCODONE HYDROCHLORIDE
     Route: 048
  10. BACITRACIN ZINC. [Concomitant]
     Active Substance: BACITRACIN ZINC
     Route: 061
  11. PROTOPIC [Concomitant]
     Active Substance: TACROLIMUS
     Route: 061
  12. EMLA [Concomitant]
     Active Substance: LIDOCAINE\PRILOCAINE
     Route: 061
  13. OMEPRAZOLE. [Concomitant]
     Active Substance: OMEPRAZOLE
     Route: 048
  14. TRACLEER [Suspect]
     Active Substance: BOSENTAN
     Indication: PULMONARY ARTERIAL HYPERTENSION
     Dosage: 20 MG, BID
     Route: 048
     Dates: start: 20160418
  15. MIRALAX [Concomitant]
     Active Substance: POLYETHYLENE GLYCOL 3350
     Route: 048
  16. CHILDRENS IBUPROFEN [Concomitant]
     Active Substance: IBUPROFEN
     Route: 048
  17. LEVOTHROID [Concomitant]
     Active Substance: LEVOTHYROXINE SODIUM
     Dosage: 25 MCG, UNK
     Route: 048

REACTIONS (6)
  - Alanine aminotransferase increased [Recovered/Resolved]
  - Gastrointestinal tube insertion [Unknown]
  - Aspartate aminotransferase increased [Recovered/Resolved]
  - Failure to thrive [Unknown]
  - Oesophagogastric fundoplasty [Unknown]
  - Liver function test abnormal [Recovered/Resolved]

NARRATIVE: CASE EVENT DATE: 20170608
